FAERS Safety Report 19727203 (Version 4)
Quarter: 2022Q1

REPORT INFORMATION
  Report Type: Spontaneous
  Country: US (occurrence: US)
  Receive Date: 20210820
  Receipt Date: 20220208
  Transmission Date: 20220423
  Serious: Yes (Death, Hospitalization, Other)
  Sender: FDA-Public Use
  Company Number: US-GLAXOSMITHKLINE-US2021GSK174593

PATIENT
  Age: 21 Year
  Sex: Female

DRUGS (6)
  1. LAMICTAL [Suspect]
     Active Substance: LAMOTRIGINE
     Indication: Affective disorder
     Dosage: 25 MG
     Route: 048
     Dates: start: 201712
  2. LAMICTAL [Suspect]
     Active Substance: LAMOTRIGINE
     Indication: Bipolar disorder
     Dosage: 25 MG, BID
     Route: 048
  3. LAMICTAL [Suspect]
     Active Substance: LAMOTRIGINE
     Indication: Anxiety
  4. LAMICTAL [Suspect]
     Active Substance: LAMOTRIGINE
     Indication: Depression
  5. LAMICTAL [Suspect]
     Active Substance: LAMOTRIGINE
     Indication: Anxiety
     Dosage: 100 MG, QD
     Route: 048
     Dates: start: 20180414, end: 20180727
  6. LAMICTAL [Suspect]
     Active Substance: LAMOTRIGINE
     Indication: Depression
     Dosage: 25 MG, QD
     Route: 048
     Dates: end: 20180727

REACTIONS (39)
  - Toxic epidermal necrolysis [Fatal]
  - Haemophagocytic lymphohistiocytosis [Fatal]
  - Renal failure [Unknown]
  - Stevens-Johnson syndrome [Unknown]
  - Acute respiratory distress syndrome [Unknown]
  - Rash [Unknown]
  - Rash vesicular [Unknown]
  - Oral mucosal blistering [Unknown]
  - Rash macular [Unknown]
  - Lip blister [Unknown]
  - Oropharyngeal blistering [Unknown]
  - Skin necrosis [Unknown]
  - Pneumonia [Unknown]
  - Respiratory failure [Unknown]
  - Haemorrhagic infarction [Unknown]
  - Fungaemia [Unknown]
  - Pulmonary haemorrhage [Unknown]
  - Respiratory distress [Unknown]
  - Acute kidney injury [Unknown]
  - Hyperkalaemia [Unknown]
  - Splenomegaly [Unknown]
  - Oropharyngeal pain [Unknown]
  - Swelling face [Unknown]
  - Condition aggravated [Unknown]
  - Stomatitis [Unknown]
  - Dysphagia [Unknown]
  - Dysuria [Unknown]
  - Chapped lips [Unknown]
  - Pyrexia [Unknown]
  - Conjunctivitis [Unknown]
  - Dermatitis [Unknown]
  - Haematoma [Unknown]
  - Mucosal inflammation [Unknown]
  - Jugular vein thrombosis [Unknown]
  - Dyspnoea [Unknown]
  - Rash maculo-papular [Unknown]
  - Acidosis [Unknown]
  - Hypercapnia [Unknown]
  - Pneumothorax [Unknown]

NARRATIVE: CASE EVENT DATE: 20180701
